FAERS Safety Report 6867875-8 (Version None)
Quarter: 2010Q3

REPORT INFORMATION
  Report Type: 
  Country: None (occurrence: None)
  Receive Date: 20100722
  Receipt Date: 20080507
  Transmission Date: 20110219
  Serious: No
  Sender: FDA-Public Use
  Company Number: US-PFIZER INC-2008039590

PATIENT
  Sex: Female
  Weight: 65.909 kg

DRUGS (2)
  1. CHANTIX [Suspect]
     Indication: SMOKING CESSATION THERAPY
     Dates: start: 20080414
  2. ALPRAZOLAM [Concomitant]

REACTIONS (3)
  - ABDOMINAL DISCOMFORT [None]
  - FATIGUE [None]
  - NAUSEA [None]
